FAERS Safety Report 8956903 (Version 1)
Quarter: 2012Q4

REPORT INFORMATION
  Report Type: Report from Study
  Country: BR (occurrence: BR)
  Receive Date: 20121210
  Receipt Date: 20121210
  Transmission Date: 20130627
  Serious: Yes (Other)
  Sender: FDA-Public Use
  Company Number: BR-ABBOTT-12P-020-1019414-00

PATIENT
  Sex: Female
  Weight: 56 kg

DRUGS (5)
  1. HUMIRA [Suspect]
     Indication: PSORIATIC ARTHROPATHY
     Route: 058
  2. PRISTIQ [Concomitant]
     Indication: ANXIETY
     Dosage: 1 tablet daily
     Route: 048
     Dates: start: 2009
  3. ZETRON [Concomitant]
     Indication: DISTURBANCE IN ATTENTION
     Route: 048
     Dates: start: 2009
  4. YASMIN [Concomitant]
     Indication: CONTRACEPTION
     Dosage: 1 tablet daily
     Route: 048
     Dates: start: 1994
  5. UNKNOWN ANTIBIOTIC [Concomitant]
     Indication: PRODUCT USED FOR UNKNOWN INDICATION

REACTIONS (4)
  - Endodontic procedure [Recovered/Resolved]
  - Dysentery [Recovered/Resolved]
  - Pain [Unknown]
  - Drug ineffective [Unknown]
